FAERS Safety Report 23960571 (Version 1)
Quarter: 2024Q2

REPORT INFORMATION
  Report Type: Spontaneous
  Country: PT (occurrence: PT)
  Receive Date: 20240611
  Receipt Date: 20240611
  Transmission Date: 20240716
  Serious: Yes (Life-Threatening)
  Sender: FDA-Public Use
  Company Number: PT-ATRAL-20240123

PATIENT
  Age: 47 Year
  Sex: Male

DRUGS (3)
  1. AMOXICILLIN\CLAVULANIC ACID [Suspect]
     Active Substance: AMOXICILLIN\CLAVULANIC ACID
     Indication: Antibiotic prophylaxis
     Dosage: 875 MG + 125 MG 12/12H
     Route: 048
     Dates: start: 20240521, end: 20240521
  2. DEFLAZACORT [Suspect]
     Active Substance: DEFLAZACORT
     Indication: Antibiotic prophylaxis
     Dosage: 30 MG
     Route: 065
     Dates: start: 20240521
  3. ACETAMINOPHEN [Suspect]
     Active Substance: ACETAMINOPHEN
     Indication: Antibiotic prophylaxis
     Dosage: 1000 MG
     Route: 065
     Dates: start: 20240521

REACTIONS (1)
  - Anaphylactic reaction [Recovering/Resolving]

NARRATIVE: CASE EVENT DATE: 20240521
